FAERS Safety Report 12734215 (Version 2)
Quarter: 2016Q4

REPORT INFORMATION
  Report Type: Report from Study
  Country: US (occurrence: US)
  Receive Date: 20160912
  Receipt Date: 20161031
  Transmission Date: 20170207
  Serious: Yes (Other)
  Sender: FDA-Public Use
  Company Number: US-BAYER-2016-152136

PATIENT
  Age: 82 Year
  Sex: Female
  Weight: 47.75 kg

DRUGS (4)
  1. ADEMPAS [Suspect]
     Active Substance: RIOCIGUAT
     Indication: PULMONARY ARTERIAL HYPERTENSION
     Dosage: UNK
     Dates: start: 20160722
  2. OFEV [Suspect]
     Active Substance: NINTEDANIB
     Dosage: UNK
     Dates: start: 201607, end: 20160906
  3. ADEMPAS [Suspect]
     Active Substance: RIOCIGUAT
     Indication: PULMONARY ARTERIAL HYPERTENSION
     Dosage: 0.5 MG, TID
     Route: 048
  4. ADEMPAS [Suspect]
     Active Substance: RIOCIGUAT
     Indication: PULMONARY ARTERIAL HYPERTENSION
     Dosage: 0.5 MG, TID

REACTIONS (19)
  - Diarrhoea [Unknown]
  - Weight decreased [Unknown]
  - Productive cough [None]
  - Drug ineffective [None]
  - Decreased appetite [Unknown]
  - Lethargy [Unknown]
  - Gastrooesophageal reflux disease [None]
  - Pain in jaw [None]
  - Nausea [None]
  - Dehydration [Unknown]
  - Dyspnoea [None]
  - Fatigue [Unknown]
  - Somnolence [Unknown]
  - Cough [Unknown]
  - Chills [Unknown]
  - Pyrexia [Unknown]
  - Dyspepsia [None]
  - Feeding disorder [Unknown]
  - Asthenia [None]

NARRATIVE: CASE EVENT DATE: 201608
